FAERS Safety Report 9494010 (Version 1)
Quarter: 2013Q3

REPORT INFORMATION
  Report Type: Spontaneous
  Country: GB (occurrence: None)
  Receive Date: 20130827
  Receipt Date: 20130827
  Transmission Date: 20140515
  Serious: Yes (Other)
  Sender: FDA-Public Use
  Company Number: GER/UKI/13/0034259

PATIENT
  Age: 41 Year
  Sex: Female
  Weight: 77 kg

DRUGS (5)
  1. TERBINAFINE (TERBINAFINE) [Suspect]
     Indication: ONYCHOMYCOSIS
     Route: 048
     Dates: start: 20130719, end: 20130729
  2. FERROUS FUMARATE (FERROUS FUMARATE) [Concomitant]
  3. MIRENA (LEVONORGESTREL) [Concomitant]
  4. TETRACYLCINE (TETRACYLCINE) [Concomitant]
  5. TRIMETHOPIRM (TRIMETHOPRIM) [Concomitant]

REACTIONS (1)
  - Rectal haemorrhage [None]
